FAERS Safety Report 6121862-6 (Version None)
Quarter: 2009Q1

REPORT INFORMATION
  Report Type: 
  Country: None (occurrence: None)
  Receive Date: 20090317
  Receipt Date: 20090223
  Transmission Date: 20090719
  Serious: Yes (Death, Hospitalization)
  Sender: FDA-Public Use
  Company Number: DE-PFIZER INC-2008075677

PATIENT

DRUGS (5)
  1. SUNITINIB MALATE [Suspect]
     Indication: METASTATIC RENAL CELL CARCINOMA
     Dosage: 50 MG, 1X/DAY
     Route: 048
     Dates: start: 20071128
  2. MORPHINE SULFATE [Suspect]
  3. BENZYDAMINE [Concomitant]
     Dosage: UNK
     Dates: start: 20071211, end: 20081020
  4. METOCLOPRAMIDE [Concomitant]
     Dosage: UNK
     Dates: start: 20071211, end: 20081020
  5. OMEPRAZOLE [Concomitant]
     Dosage: UNK
     Dates: start: 20071211, end: 20081020

REACTIONS (4)
  - CONSTIPATION [None]
  - ILEUS [None]
  - METASTATIC RENAL CELL CARCINOMA [None]
  - NEOPLASM PROGRESSION [None]
